FAERS Safety Report 7851475-7 (Version None)
Quarter: 2011Q4

REPORT INFORMATION
  Report Type: 
  Country: None (occurrence: None)
  Receive Date: 20111021
  Receipt Date: 20111011
  Transmission Date: 20120403
  Serious: Yes (Other)
  Sender: FDA-Public Use
  Company Number: GB-ACCORD-010984

PATIENT
  Age: 53 Year
  Sex: Male
  Weight: 110 kg

DRUGS (3)
  1. SIMVASTATIN [Suspect]
     Indication: HYPERCHOLESTEROLAEMIA
     Dosage: 40.00-MG-1.00 TIMES PER-1.0DAYS/ORAL
     Route: 048
     Dates: start: 20110905, end: 20110923
  2. ALLOPURINOL [Concomitant]
  3. RAMIPRIL [Concomitant]

REACTIONS (3)
  - VISION BLURRED [None]
  - PAIN IN EXTREMITY [None]
  - MUSCLE SPASMS [None]
